FAERS Safety Report 7687929-6 (Version None)
Quarter: 2011Q3

REPORT INFORMATION
  Report Type: 
  Country: None (occurrence: None)
  Receive Date: 20110817
  Receipt Date: 20110817
  Transmission Date: 20111222
  Serious: Yes (Hospitalization, Other)
  Sender: FDA-Public Use
  Company Number: US-PFIZER INC-2011181715

PATIENT
  Sex: Female

DRUGS (6)
  1. METOPROLOL [Concomitant]
     Indication: CARDIAC DISORDER
     Dosage: 25 MG, UNK
  2. AROMASIN [Suspect]
     Indication: WOUND
     Dosage: 25 MG, UNK
     Route: 048
     Dates: end: 20110101
  3. FUROSEMIDE [Concomitant]
     Indication: FLUID IMBALANCE
     Dosage: 2 MG, 2X/WEEK
  4. RANITIDINE [Concomitant]
     Indication: GASTRIC HAEMORRHAGE
     Dosage: UNK
  5. METOPROLOL [Concomitant]
     Indication: BLOOD PRESSURE ABNORMAL
  6. FERROUS SULFATE TAB [Concomitant]
     Indication: BLOOD DISORDER
     Dosage: DAILY

REACTIONS (2)
  - WOUND COMPLICATION [None]
  - PNEUMONIA [None]
